FAERS Safety Report 9052953 (Version 1)
Quarter: 2013Q1

REPORT INFORMATION
  Report Type: Spontaneous
  Country: IT (occurrence: IT)
  Receive Date: 20130208
  Receipt Date: 20130208
  Transmission Date: 20140127
  Serious: Yes (Hospitalization)
  Sender: FDA-Public Use
  Company Number: IT-ABBOTT-13P-083-1044115-00

PATIENT
  Age: 14 None
  Sex: Male

DRUGS (1)
  1. MACLADIN TM [Suspect]
     Indication: RESPIRATORY TRACT INFECTION
     Route: 048
     Dates: start: 20121102, end: 20121103

REACTIONS (3)
  - Lip oedema [Recovered/Resolved]
  - Erythema [Recovered/Resolved]
  - Pharyngeal erythema [Recovered/Resolved]
